FAERS Safety Report 11562770 (Version 1)
Quarter: 2015Q3

REPORT INFORMATION
  Report Type: Spontaneous
  Country: US (occurrence: US)
  Receive Date: 20150916
  Receipt Date: 20150916
  Transmission Date: 20151125
  Serious: No
  Sender: FDA-Public Use
  Company Number: US-ELI_LILLY_AND_COMPANY-US200812005536

PATIENT
  Age: 82 Year
  Sex: Female

DRUGS (5)
  1. AMBIEN [Concomitant]
     Active Substance: ZOLPIDEM TARTRATE
     Dosage: UNK, DAILY (1/D)
  2. COMBIGAN [Concomitant]
     Active Substance: BRIMONIDINE TARTRATE\TIMOLOL MALEATE
     Indication: GLAUCOMA
     Dosage: UNK, 2/D
     Route: 047
     Dates: start: 200811
  3. SYNTHROID [Concomitant]
     Active Substance: LEVOTHYROXINE SODIUM
     Dosage: UNK, DAILY (1/D)
  4. FORTEO [Suspect]
     Active Substance: TERIPARATIDE
     Dosage: UNK, UNK
     Dates: start: 20081202, end: 20081222
  5. PAXIL [Concomitant]
     Active Substance: PAROXETINE HYDROCHLORIDE
     Dosage: UNK, DAILY (1/D)

REACTIONS (16)
  - Balance disorder [Recovered/Resolved]
  - Pain in extremity [Recovered/Resolved]
  - Gait disturbance [Recovered/Resolved]
  - Irritability [Recovering/Resolving]
  - Eye pain [Not Recovered/Not Resolved]
  - Nodule [Not Recovered/Not Resolved]
  - Vertigo [Recovered/Resolved]
  - Dizziness [Recovered/Resolved]
  - Arthralgia [Not Recovered/Not Resolved]
  - Adverse drug reaction [Recovering/Resolving]
  - Visual acuity reduced [Not Recovered/Not Resolved]
  - Nausea [Recovered/Resolved]
  - Feeling abnormal [Recovered/Resolved]
  - Abdominal pain upper [Recovered/Resolved]
  - Malaise [Recovered/Resolved]
  - Pruritus [Not Recovered/Not Resolved]

NARRATIVE: CASE EVENT DATE: 200812
